FAERS Safety Report 17836346 (Version 4)
Quarter: 2024Q4

REPORT INFORMATION
  Report Type: Spontaneous
  Country: IT (occurrence: IT)
  Receive Date: 20200528
  Receipt Date: 20241204
  Transmission Date: 20250114
  Serious: Yes (Other)
  Sender: MYLAN
  Company Number: IT-SUN PHARMACEUTICAL INDUSTRIES LTD-2020RR-247634

PATIENT
  Age: 43 Year
  Sex: Male

DRUGS (9)
  1. CAPECITABINE [Suspect]
     Active Substance: CAPECITABINE
     Indication: Pancreatic carcinoma
     Dosage: 1300 MILLIGRAM/SQ. METER, CYCLIC (1300 MG/M^2 FOR 14 D)
     Route: 065
     Dates: start: 201001, end: 201204
  2. CAPECITABINE [Suspect]
     Active Substance: CAPECITABINE
     Indication: Acinar cell carcinoma of pancreas
     Dosage: RESTARTED TREATMENT
     Route: 065
     Dates: start: 201303
  3. CAPECITABINE [Suspect]
     Active Substance: CAPECITABINE
     Indication: Pancreatic carcinoma metastatic
     Dosage: ANOTHER FOUR CYCLES UNTIL NOV/2012
     Route: 065
     Dates: end: 201211
  4. CAPECITABINE [Suspect]
     Active Substance: CAPECITABINE
     Indication: Metastases to liver
  5. OXALIPLATIN [Suspect]
     Active Substance: OXALIPLATIN
     Indication: Pancreatic carcinoma
     Dosage: 100 MILLIGRAM/SQ. METER, UNK
     Route: 065
  6. GEMCITABINE [Suspect]
     Active Substance: GEMCITABINE
     Indication: Pancreatic carcinoma
     Dosage: 1000 MILLIGRAM/SQ. METER, CYCLE ((DAY 1 AND 8))
     Route: 065
     Dates: start: 201001, end: 201204
  7. GEMCITABINE [Suspect]
     Active Substance: GEMCITABINE
     Indication: Acinar cell carcinoma of pancreas
     Dosage: 1000 MILLIGRAM/SQ. METER, UNK
     Route: 065
  8. GEMCITABINE [Suspect]
     Active Substance: GEMCITABINE
     Indication: Pancreatic carcinoma metastatic
     Dosage: RESTARTED TREATMENT
     Route: 065
     Dates: start: 201303
  9. GEMCITABINE [Suspect]
     Active Substance: GEMCITABINE
     Indication: Metastases to liver
     Dosage: ANOTHER FOUR CYCLES UNTIL NOV/2012
     Route: 065
     Dates: end: 201211

REACTIONS (5)
  - Disease progression [Unknown]
  - Therapy partial responder [Unknown]
  - Disease recurrence [Unknown]
  - Anaemia [Unknown]
  - Neutropenia [Unknown]
